FAERS Safety Report 15115118 (Version 2)
Quarter: 2018Q3

REPORT INFORMATION
  Report Type: Spontaneous
  Country: US (occurrence: US)
  Receive Date: 20180706
  Receipt Date: 20180920
  Transmission Date: 20181010
  Serious: No
  Sender: FDA-Public Use
  Company Number: US-IGSA-SR10006397

PATIENT
  Age: 50 Year
  Sex: Female
  Weight: 111.8 kg

DRUGS (51)
  1. HEPARIN [Concomitant]
     Active Substance: HEPARIN SODIUM
     Indication: THERAPEUTIC PROCEDURE
     Dosage: 500 IU, PRN
     Route: 042
     Dates: start: 20180502, end: 20180502
  2. ATROVENT [Concomitant]
     Active Substance: IPRATROPIUM BROMIDE
     Indication: HYPERSENSITIVITY
     Dosage: UNK UNK, PRN
     Route: 055
     Dates: start: 20160101
  3. CALCIUM + D3                       /00944201/ [Concomitant]
     Active Substance: CALCIUM CARBONATE\CHOLECALCIFEROL
     Indication: NUTRITIONAL SUPPLEMENTATION
     Dosage: UNK UNK, BID
     Route: 048
  4. CLONAZEPAM. [Concomitant]
     Active Substance: CLONAZEPAM
     Dosage: 2 MG, QD
     Route: 048
     Dates: start: 20160101
  5. LEVOTHYROXINE. [Concomitant]
     Active Substance: LEVOTHYROXINE
     Indication: THYROID THERAPY
     Dosage: 112 ?G, QD
     Route: 048
     Dates: start: 20160101
  6. PROTONIX                           /00661201/ [Concomitant]
     Active Substance: OMEPRAZOLE
     Dosage: 40 MG, QD
     Route: 048
     Dates: start: 20160101
  7. SINGULAIR [Concomitant]
     Active Substance: MONTELUKAST SODIUM
     Dosage: 10 MG, UNK
     Route: 048
     Dates: start: 20160101
  8. SOLU?MEDROL [Concomitant]
     Active Substance: METHYLPREDNISOLONE SODIUM SUCCINATE
     Dosage: 62.5 MG, Q.2WK.
     Route: 042
     Dates: start: 20170906
  9. ADDERALL [Concomitant]
     Active Substance: AMPHETAMINE ASPARTATE\AMPHETAMINE SULFATE\DEXTROAMPHETAMINE SACCHARATE\DEXTROAMPHETAMINE SULFATE
     Dosage: 20 MG, BID
     Route: 048
     Dates: start: 20160101
  10. COMPAZINE                          /00013302/ [Concomitant]
     Active Substance: PROCHLORPERAZINE EDISYLATE
     Indication: NAUSEA
     Dosage: 25 MG, PRN
     Route: 050
     Dates: start: 20150825
  11. DOMPERIDONE [Concomitant]
     Active Substance: DOMPERIDONE
     Indication: NAUSEA
     Dosage: 10 MG, PRN
     Route: 048
     Dates: start: 20160101
  12. DOMPERIDONE [Concomitant]
     Active Substance: DOMPERIDONE
     Indication: VOMITING
  13. EPIPEN [Concomitant]
     Active Substance: EPINEPHRINE
     Indication: ANAPHYLACTIC REACTION
     Dosage: 0.3 MG, PRN
     Route: 030
     Dates: start: 20160101
  14. METFORMIN [Concomitant]
     Active Substance: METFORMIN HYDROCHLORIDE
     Indication: DIABETES MELLITUS
     Dosage: 250 MG, BID
     Route: 048
     Dates: start: 20161211
  15. SONATA                             /00061001/ [Concomitant]
     Active Substance: CARISOPRODOL
     Indication: SLEEP DISORDER
     Dosage: 10 MG, QD
     Route: 048
     Dates: start: 20160101
  16. VITAMIN D                          /00107901/ [Concomitant]
     Active Substance: ERGOCALCIFEROL
     Indication: VITAMIN SUPPLEMENTATION
     Dosage: 2000 IU, BID
     Route: 048
     Dates: start: 20160101
  17. XOLAIR [Concomitant]
     Active Substance: OMALIZUMAB
     Dosage: UNK UNK, Q.2WK.
     Route: 058
     Dates: start: 20160101
  18. DIPHENHYDRAMINE. [Concomitant]
     Active Substance: DIPHENHYDRAMINE
     Indication: PREMEDICATION
     Dosage: 20 MG, PRN
     Route: 042
     Dates: start: 20180502, end: 20180502
  19. NACL [Concomitant]
     Active Substance: SODIUM CHLORIDE
     Indication: THERAPEUTIC PROCEDURE
     Dosage: 10 ML, PRN
     Route: 042
     Dates: start: 20180502, end: 20180502
  20. HYDROXYZINE [Concomitant]
     Active Substance: HYDROXYZINE HYDROCHLORIDE
     Dosage: 25 MG, PRN
     Route: 048
  21. ONDASETRON                         /00955301/ [Concomitant]
     Active Substance: ONDANSETRON
     Indication: NAUSEA
     Dosage: 8 MG, PRN
     Route: 042
     Dates: start: 20180502, end: 20180502
  22. TYLENOL [Concomitant]
     Active Substance: ACETAMINOPHEN
     Indication: PREMEDICATION
     Dosage: 500 MG, PRN
     Route: 048
     Dates: start: 20180502, end: 20180502
  23. LISINOPRIL. [Concomitant]
     Active Substance: LISINOPRIL
     Dosage: 20 MG, QD
     Route: 048
     Dates: start: 20160101
  24. OMEGA 3                            /01333901/ [Concomitant]
     Active Substance: FISH OIL\TOCOPHEROL
     Indication: NUTRITIONAL SUPPLEMENTATION
     Dosage: 1000 MG, BID
     Route: 048
     Dates: start: 20160101
  25. SYMBICORT [Concomitant]
     Active Substance: BUDESONIDE\FORMOTEROL FUMARATE DIHYDRATE
     Dosage: UNK
     Route: 055
     Dates: start: 20160101
  26. VENTOLIN HFA [Concomitant]
     Active Substance: ALBUTEROL SULFATE
     Indication: ASTHMA
     Dosage: UNK UNK, PRN
     Route: 055
     Dates: start: 20160101
  27. LACTULOSE. [Concomitant]
     Active Substance: LACTULOSE
     Dosage: 60 ML, Q.WK.
     Route: 048
     Dates: start: 20161211
  28. METOCLOPRAMIDE. [Concomitant]
     Active Substance: METOCLOPRAMIDE
     Indication: NAUSEA
     Dosage: 5 MG, QID
     Route: 048
     Dates: start: 20161211
  29. FENTANYL. [Concomitant]
     Active Substance: FENTANYL
     Indication: PAIN
     Dosage: 50 ?G, PRN
     Route: 050
     Dates: start: 20160502
  30. LINZESS [Concomitant]
     Active Substance: LINACLOTIDE
     Dosage: 290 ?G, QD
     Route: 048
     Dates: start: 20160101
  31. OXYCODONE [Concomitant]
     Active Substance: OXYCODONE
     Indication: PAIN
     Dosage: 10 MG, PRN
     Route: 048
     Dates: start: 20160101
  32. WELLBUTRIN [Concomitant]
     Active Substance: BUPROPION HYDROCHLORIDE
     Dosage: 150 MG, QD
     Route: 048
     Dates: start: 20160405
  33. NACL [Concomitant]
     Active Substance: SODIUM CHLORIDE
     Indication: PROPHYLAXIS AGAINST DEHYDRATION
     Dosage: 1000 ML, PRN
     Route: 042
     Dates: start: 20180502, end: 20180502
  34. BORIC ACID [Concomitant]
     Active Substance: BORIC ACID
     Indication: EAR IRRIGATION
     Dosage: UNK UNK, PRN
     Route: 050
  35. PROVENTIL [Concomitant]
     Active Substance: ALBUTEROL
     Indication: ASTHMA
     Dosage: UNK UNK, PRN
     Route: 055
     Dates: start: 20160101
  36. SPIRIVA [Concomitant]
     Active Substance: TIOTROPIUM BROMIDE MONOHYDRATE
     Dosage: 150 ?G, QD
     Route: 055
     Dates: start: 20160101
  37. TRIAMCINOLONE [Concomitant]
     Active Substance: TRIAMCINOLONE
     Dosage: UNK UNK, PRN
     Route: 061
     Dates: start: 20160416
  38. ZOCOR [Concomitant]
     Active Substance: SIMVASTATIN
     Indication: BLOOD CHOLESTEROL
     Dosage: 20 MG, QD
     Route: 048
     Dates: start: 20160101
  39. ZOFRAN [Concomitant]
     Active Substance: ONDANSETRON HYDROCHLORIDE
     Indication: NAUSEA
     Dosage: 4 MG, PRN
     Route: 048
     Dates: start: 20150812
  40. METOPROLOL SUCCINATE. [Concomitant]
     Active Substance: METOPROLOL SUCCINATE
     Dosage: 25 MG, QD
     Route: 048
     Dates: start: 20150922
  41. OLOPATADINA [Concomitant]
     Indication: HYPERSENSITIVITY
     Dosage: UNK UNK, BID
     Route: 055
     Dates: start: 20160428
  42. ZYRTEC [Concomitant]
     Active Substance: CETIRIZINE HYDROCHLORIDE
     Indication: HYPERSENSITIVITY
     Dosage: 10 MG, QD
     Route: 048
     Dates: start: 20160101
  43. GAMUNEX?C [Suspect]
     Active Substance: HUMAN IMMUNOGLOBULIN G
     Indication: IMMUNODEFICIENCY COMMON VARIABLE
     Dosage: 40 G, Q.2WK.
     Route: 042
     Dates: start: 20180502
  44. CLOBETASOL [Concomitant]
     Active Substance: CLOBETASOL
     Dosage: 3 DROP, QD
     Route: 050
     Dates: start: 20170719
  45. CYMBALTA [Concomitant]
     Active Substance: DULOXETINE HYDROCHLORIDE
     Dosage: 60 MG, BID
     Route: 048
     Dates: start: 20160101
  46. LORAZEPAM. [Concomitant]
     Active Substance: LORAZEPAM
     Dosage: 1 MG, PRN
     Dates: start: 20160101
  47. MOVANTIK [Concomitant]
     Active Substance: NALOXEGOL OXALATE
     Dosage: 25 MG, QD
     Route: 048
     Dates: start: 20161211
  48. MULTIVITAMIN                       /00097801/ [Concomitant]
     Active Substance: VITAMINS
     Indication: VITAMIN SUPPLEMENTATION
     Dosage: UNK UNK, QD
     Route: 048
     Dates: start: 20160101
  49. PHENERGAN [Concomitant]
     Active Substance: PROMETHAZINE HYDROCHLORIDE
     Indication: NAUSEA
     Dosage: 25 MG, PRN
     Route: 050
     Dates: start: 20170102
  50. SAPHRIS [Concomitant]
     Active Substance: ASENAPINE MALEATE
     Dosage: 10 MG, QD
     Route: 048
     Dates: start: 20160101
  51. VITAMIN B12 [Concomitant]
     Active Substance: CYANOCOBALAMIN
     Indication: VITAMIN SUPPLEMENTATION
     Dosage: 1000 ?G, BID
     Route: 048
     Dates: start: 20160101

REACTIONS (2)
  - Vomiting [Recovered/Resolved]
  - Fatigue [Recovered/Resolved]

NARRATIVE: CASE EVENT DATE: 20180503
